FAERS Safety Report 9259907 (Version 1)
Quarter: 2013Q2

REPORT INFORMATION
  Report Type: Spontaneous
  Country: IT (occurrence: IT)
  Receive Date: 20130429
  Receipt Date: 20130429
  Transmission Date: 20140414
  Serious: Yes (Other)
  Sender: FDA-Public Use
  Company Number: IT-RANBAXY-2013R1-67955

PATIENT
  Sex: Male

DRUGS (3)
  1. AMOXICILLINA E ACIDO CLAVULANICO RANBAXY ITALIA 875 MG+125 MG FILM COA [Suspect]
     Indication: ANTIBIOTIC THERAPY
     Dosage: UNK
     Route: 048
     Dates: start: 20130124, end: 20130124
  2. AMOXICILLINA E ACIDO CLAVULANICO RANBAXY ITALIA 875 MG+125 MG FILM COA [Suspect]
     Dosage: 125 MG, UNK
     Dates: start: 20130124, end: 20130124
  3. AZITHROMYCIN AND AEROSOL THERAPY [Concomitant]
     Indication: SINUSITIS
     Route: 065

REACTIONS (6)
  - Face oedema [Recovering/Resolving]
  - Laryngeal oedema [Recovering/Resolving]
  - Pruritus [Recovering/Resolving]
  - Urticaria [Recovering/Resolving]
  - Urticaria [Recovering/Resolving]
  - Urticaria [None]
